FAERS Safety Report 16876375 (Version 1)
Quarter: 2019Q4

REPORT INFORMATION
  Report Type: Spontaneous
  Country: US (occurrence: US)
  Receive Date: 20191002
  Receipt Date: 20191002
  Transmission Date: 20200122
  Serious: Yes (Disabling)
  Sender: FDA-Public Use
  Company Number: None

PATIENT
  Age: 38 Year
  Sex: Female
  Weight: 56.25 kg

DRUGS (8)
  1. VITAMIN C AND D [Concomitant]
  2. ACYCLOVIR 400MG DAILY [Concomitant]
  3. SUPER B COMPLEX [Concomitant]
     Active Substance: CYANOCOBALAMIN\DEXPANTHENOL\NIACINAMIDE\PYRIDOXINE HYDROCHLORIDE\RIBOFLAVIN 5^-PHOSPHATE SODIUM\THIAMINE HYDROCHLORIDE\VITAMIN B COMPLEX
  4. IRON [Concomitant]
     Active Substance: IRON
  5. AIMOVIG [Suspect]
     Active Substance: ERENUMAB-AOOE
     Indication: MIGRAINE
     Dosage: ?          OTHER FREQUENCY:EVERY 4 WEEKS;?
     Route: 030
     Dates: start: 20190905, end: 20190905
  6. MAGNESIUM [Concomitant]
     Active Substance: MAGNESIUM
  7. TURMERIC CURAMIN [Concomitant]
  8. CALCIUM [Concomitant]
     Active Substance: CALCIUM

REACTIONS (14)
  - Insomnia [None]
  - Arthralgia [None]
  - Pain [None]
  - Decreased appetite [None]
  - Swelling face [None]
  - Abdominal pain upper [None]
  - Disturbance in attention [None]
  - Back pain [None]
  - Memory impairment [None]
  - Constipation [None]
  - Headache [None]
  - Hyperhidrosis [None]
  - Feeling abnormal [None]
  - Mania [None]

NARRATIVE: CASE EVENT DATE: 20190906
